FAERS Safety Report 24926265 (Version 1)
Quarter: 2025Q1

REPORT INFORMATION
  Report Type: Spontaneous
  Country: US (occurrence: US)
  Receive Date: 20250205
  Receipt Date: 20250205
  Transmission Date: 20250409
  Serious: Yes (Other)
  Sender: UROGEN PHARMA
  Company Number: US-UROGEN PHARMA LTD.-2024-UGN-000191

PATIENT

DRUGS (6)
  1. JELMYTO [Suspect]
     Active Substance: MITOMYCIN
     Indication: Transitional cell cancer of the renal pelvis and ureter
     Dosage: 10 MILLILITER, ONCE A WEEK, RETROGRADE INSTILLATION
  2. JELMYTO [Suspect]
     Active Substance: MITOMYCIN
     Dosage: 10 MILLILITER, ONCE A WEEK, RETROGRADE INSTILLATION
  3. JELMYTO [Suspect]
     Active Substance: MITOMYCIN
     Dosage: 10 MILLILITER, ONCE A WEEK, RETROGRADE INSTILLATION
  4. JELMYTO [Suspect]
     Active Substance: MITOMYCIN
     Dosage: 10 MILLILITER, ONCE A WEEK, RETROGRADE INSTILLATION
  5. JELMYTO [Suspect]
     Active Substance: MITOMYCIN
     Dosage: 10 MILLILITER, ONCE A WEEK, RETROGRADE INSTILLATION
  6. JELMYTO [Suspect]
     Active Substance: MITOMYCIN
     Dosage: 10 MILLILITER, ONCE A WEEK, RETROGRADE INSTILLATION

REACTIONS (1)
  - Ureteric stenosis [Unknown]
